FAERS Safety Report 20485568 (Version 1)
Quarter: 2022Q1

REPORT INFORMATION
  Report Type: Spontaneous
  Country: CN (occurrence: CN)
  Receive Date: 20220217
  Receipt Date: 20220217
  Transmission Date: 20220424
  Serious: Yes (Other)
  Sender: FDA-Public Use
  Company Number: CN-BAXTER-2022BAX003254

PATIENT
  Sex: Female
  Weight: 51 kg

DRUGS (18)
  1. CYCLOPHOSPHAMIDE [Suspect]
     Active Substance: CYCLOPHOSPHAMIDE
     Indication: Breast cancer
     Dosage: 1-3 CYCLE OF CHEMOTHERAPY
     Route: 041
  2. CYCLOPHOSPHAMIDE [Suspect]
     Active Substance: CYCLOPHOSPHAMIDE
     Dosage: CYCLOPHOSPHAMIDE (ENDOXAN) (1 G) + 0.9% SODIUM CHLORIDE (500 ML), FOURTH CYCLE
     Route: 041
     Dates: start: 20220120, end: 20220120
  3. SODIUM CHLORIDE [Suspect]
     Active Substance: SODIUM CHLORIDE
     Indication: Medication dilution
     Dosage: 1-3 CYCLES OF CHEMOTHERAPY, CYCLOPHOSHAMIDE + 0.9% SODIUM CHLORIDE
     Route: 041
  4. SODIUM CHLORIDE [Suspect]
     Active Substance: SODIUM CHLORIDE
     Dosage: CYCLOPHOSPHAMIDE (ENDOXAN) (1 G) + 0.9% SODIUM CHLORIDE (500 ML), FOURTH CHEMOTHERAPY
     Route: 041
     Dates: start: 20220120, end: 20220120
  5. SODIUM CHLORIDE [Suspect]
     Active Substance: SODIUM CHLORIDE
     Dosage: 1- 3 CYCLE OF CHEMOTHERAPY, EPIRUBICIN + 0.9% SODIUM CHLORIDE
     Route: 041
  6. SODIUM CHLORIDE [Suspect]
     Active Substance: SODIUM CHLORIDE
     Dosage: EPIRUBICIN (PHARMORUBICIN) (170 MG) + 0.9% SODIUM CHLORIDE (250 ML), FOURTH CHEMOTHERAPY
     Route: 041
     Dates: start: 20220120, end: 20220120
  7. EPIRUBICIN [Suspect]
     Active Substance: EPIRUBICIN
     Indication: Breast cancer
     Dosage: 1- 3 CYCLES OF CHEMOTHERAPY
     Route: 041
  8. EPIRUBICIN [Suspect]
     Active Substance: EPIRUBICIN
     Dosage: EPIRUBICIN (PHARMORUBICIN) (170 MG) + 0.9% SODIUM CHLORIDE (250 ML), FOURTH CYCLE OF CHEMOTHERAPY
     Route: 041
     Dates: start: 20220120, end: 20220120
  9. CIMETIDINE [Concomitant]
     Active Substance: CIMETIDINE
     Indication: Antiallergic therapy
     Route: 065
  10. CIMETIDINE [Concomitant]
     Active Substance: CIMETIDINE
     Indication: Antiemetic supportive care
  11. CIMETIDINE [Concomitant]
     Active Substance: CIMETIDINE
     Indication: Prophylaxis
  12. CIMETIDINE [Concomitant]
     Active Substance: CIMETIDINE
     Indication: Symptomatic treatment
  13. CIMETIDINE [Concomitant]
     Active Substance: CIMETIDINE
     Indication: Supportive care
  14. DEXAMETHASONE [Concomitant]
     Active Substance: DEXAMETHASONE
     Indication: Antiallergic therapy
     Route: 065
  15. DEXAMETHASONE [Concomitant]
     Active Substance: DEXAMETHASONE
     Indication: Antiemetic supportive care
  16. DEXAMETHASONE [Concomitant]
     Active Substance: DEXAMETHASONE
     Indication: Prophylaxis
  17. DEXAMETHASONE [Concomitant]
     Active Substance: DEXAMETHASONE
     Indication: Symptomatic treatment
  18. DEXAMETHASONE [Concomitant]
     Active Substance: DEXAMETHASONE
     Indication: Supportive care

REACTIONS (1)
  - White blood cell count decreased [Recovering/Resolving]

NARRATIVE: CASE EVENT DATE: 20220130
